FAERS Safety Report 24869875 (Version 4)
Quarter: 2025Q3

REPORT INFORMATION
  Report Type: Report from Study
  Country: AU (occurrence: AU)
  Receive Date: 20250121
  Receipt Date: 20250728
  Transmission Date: 20251020
  Serious: Yes (Hospitalization)
  Sender: SPRINGWORKS THERAPEUTIC
  Company Number: AU-SPRINGWORKS THERAPEUTICS-SW-002289

PATIENT

DRUGS (3)
  1. NIROGACESTAT [Suspect]
     Active Substance: NIROGACESTAT
     Indication: Desmoid tumour
     Dosage: 150 MILLIGRAM, BID, CAPSULE
     Route: 048
     Dates: start: 20231019, end: 20241223
  2. NIROGACESTAT [Suspect]
     Active Substance: NIROGACESTAT
     Dates: end: 20250113
  3. NIROGACESTAT [Suspect]
     Active Substance: NIROGACESTAT
     Dosage: 50 MILLIGRAM, BID
     Dates: start: 20240718

REACTIONS (3)
  - Groin abscess [Recovered/Resolved]
  - Skin infection [Recovered/Resolved]
  - Disease progression [Unknown]

NARRATIVE: CASE EVENT DATE: 20240509
